FAERS Safety Report 6025748-7 (Version None)
Quarter: 2008Q4

REPORT INFORMATION
  Report Type: 
  Country: None (occurrence: None)
  Receive Date: 20081229
  Receipt Date: 20081016
  Transmission Date: 20090506
  Serious: No
  Sender: FDA-Public Use
  Company Number: 8038005

PATIENT
  Age: 81 Year
  Sex: Female
  Weight: 81.8 kg

DRUGS (4)
  1. KEPPRA [Suspect]
     Indication: PARTIAL SEIZURES
     Dosage: 500 MG 2/D PO
     Route: 048
     Dates: start: 20080501
  2. DIAZIDE /00413701/ [Concomitant]
  3. MULTIVITAMIN /00831701/ [Concomitant]
  4. POTASSIUM /00031402/ [Concomitant]

REACTIONS (3)
  - ALOPECIA [None]
  - CONVULSION [None]
  - INSOMNIA [None]
